FAERS Safety Report 7017921-6 (Version None)
Quarter: 2010Q3

REPORT INFORMATION
  Report Type: 
  Country: None (occurrence: None)
  Receive Date: 20100928
  Receipt Date: 20100916
  Transmission Date: 20110219
  Serious: Yes (Other)
  Sender: FDA-Public Use
  Company Number: IT-JNJFOC-20100906231

PATIENT

DRUGS (2)
  1. INFLIXIMAB, RECOMBINANT [Suspect]
     Indication: CROHN'S DISEASE
     Dosage: TIMES 3 DOSES
     Route: 042
  2. INFLIXIMAB, RECOMBINANT [Suspect]
     Dosage: AT 0-2-6 WEEKS
     Route: 042

REACTIONS (1)
  - ILEAL STENOSIS [None]
